FAERS Safety Report 15521607 (Version 2)
Quarter: 2018Q4

REPORT INFORMATION
  Report Type: Spontaneous
  Country: RU (occurrence: RU)
  Receive Date: 20181017
  Receipt Date: 20181029
  Transmission Date: 20190205
  Serious: Yes (Hospitalization, Other)
  Sender: FDA-Public Use
  Company Number: RU-009507513-1810RUS007003

PATIENT
  Age: 3 Year
  Sex: Male

DRUGS (4)
  1. DICYNONE [Concomitant]
     Active Substance: ETHAMSYLATE
  2. NASONEX [Concomitant]
     Active Substance: MOMETASONE FUROATE
     Indication: RHINITIS ALLERGIC
  3. ASCORUTIN [Suspect]
     Active Substance: ASCORBIC ACID\RUTIN
     Dosage: UNK
  4. SINGULAIR [Suspect]
     Active Substance: MONTELUKAST SODIUM
     Indication: RHINITIS ALLERGIC
     Dosage: UNK
     Route: 048

REACTIONS (5)
  - Petechiae [Unknown]
  - Pyrexia [Unknown]
  - Immune thrombocytopenic purpura [Recovered/Resolved]
  - Respiratory tract infection viral [Unknown]
  - Infectious mononucleosis [Unknown]
